FAERS Safety Report 15487108 (Version 1)
Quarter: 2018Q4

REPORT INFORMATION
  Report Type: Spontaneous
  Country: US (occurrence: US)
  Receive Date: 20181011
  Receipt Date: 20181011
  Transmission Date: 20190205
  Serious: No
  Sender: FDA-Public Use
  Company Number: US-IPSEN BIOPHARMACEUTICALS, INC.-2018-15166

PATIENT
  Age: 76 Year
  Sex: Male
  Weight: 70.3 kg

DRUGS (4)
  1. CRESTOR [Concomitant]
     Active Substance: ROSUVASTATIN CALCIUM
  2. SUPREP BOWEL PREP [Suspect]
     Active Substance: MAGNESIUM SULFATE\POTASSIUM SULFATE\SODIUM SULFATE
     Indication: COLONOSCOPY
     Dosage: 1X 6 OZ, BOTTLE 1XPO
     Dates: start: 20180923, end: 20180923
  3. CHONDROITIN [Concomitant]
     Active Substance: CHONDROITIN
  4. BABAY ASPIRIN [Concomitant]

REACTIONS (3)
  - Headache [Unknown]
  - Heart rate decreased [Unknown]
  - Paraesthesia [Unknown]

NARRATIVE: CASE EVENT DATE: 20180923
